FAERS Safety Report 24190217 (Version 1)
Quarter: 2024Q3

REPORT INFORMATION
  Report Type: Spontaneous
  Country: US (occurrence: None)
  Receive Date: 20240808
  Receipt Date: 20240808
  Transmission Date: 20241016
  Serious: Yes (Hospitalization)
  Sender: Public
  Company Number: None

PATIENT
  Age: 61 Year
  Sex: Female
  Weight: 50.3 kg

DRUGS (1)
  1. CISPLATIN [Suspect]
     Active Substance: CISPLATIN
     Dates: end: 20240215

REACTIONS (5)
  - Dyspnoea [None]
  - Increased upper airway secretion [None]
  - Inflammation [None]
  - Localised oedema [None]
  - Hypothyroidism [None]

NARRATIVE: CASE EVENT DATE: 20240726
